FAERS Safety Report 5303214-1 (Version None)
Quarter: 2007Q2

REPORT INFORMATION
  Report Type: 
  Country: None (occurrence: None)
  Receive Date: 20070417
  Receipt Date: 20070417
  Transmission Date: 20071010
  Serious: Yes (Other)
  Sender: FDA-Public Use
  Company Number: None

PATIENT
  Sex: Male
  Weight: 117.9352 kg

DRUGS (1)
  1. LEVAQUIN [Suspect]
     Indication: FEBRILE NEUTROPENIA
     Dosage: 2 BAGS (500 ML?) IV
     Route: 042
     Dates: start: 20070226, end: 20070227

REACTIONS (1)
  - TENDONITIS [None]
